FAERS Safety Report 6094984-6 (Version None)
Quarter: 2009Q1

REPORT INFORMATION
  Report Type: 
  Country: None (occurrence: None)
  Receive Date: 20090225
  Receipt Date: 20090223
  Transmission Date: 20090719
  Serious: Yes (Death, Disabling, Other)
  Sender: FDA-Public Use
  Company Number: 2007SP022039

PATIENT
  Age: 43 Year
  Sex: Male
  Weight: 82 kg

DRUGS (15)
  1. TEMODAL [Suspect]
     Indication: DISEASE RECURRENCE
     Dosage: 150 MG/M2;QD;PO; 150 MG/M2;QD;PO; 150 MG/M2;QD;PO; 150 MG/M2;QD;PO
     Route: 048
     Dates: start: 20061204, end: 20061208
  2. TEMODAL [Suspect]
     Indication: GLIOBLASTOMA MULTIFORME
     Dosage: 150 MG/M2;QD;PO; 150 MG/M2;QD;PO; 150 MG/M2;QD;PO; 150 MG/M2;QD;PO
     Route: 048
     Dates: start: 20061204, end: 20061208
  3. TEMODAL [Suspect]
     Indication: DISEASE RECURRENCE
     Dosage: 150 MG/M2;QD;PO; 150 MG/M2;QD;PO; 150 MG/M2;QD;PO; 150 MG/M2;QD;PO
     Route: 048
     Dates: start: 20070105, end: 20070109
  4. TEMODAL [Suspect]
     Indication: GLIOBLASTOMA MULTIFORME
     Dosage: 150 MG/M2;QD;PO; 150 MG/M2;QD;PO; 150 MG/M2;QD;PO; 150 MG/M2;QD;PO
     Route: 048
     Dates: start: 20070105, end: 20070109
  5. TEMODAL [Suspect]
     Indication: DISEASE RECURRENCE
     Dosage: 150 MG/M2;QD;PO; 150 MG/M2;QD;PO; 150 MG/M2;QD;PO; 150 MG/M2;QD;PO
     Route: 048
     Dates: start: 20070205, end: 20070209
  6. TEMODAL [Suspect]
     Indication: GLIOBLASTOMA MULTIFORME
     Dosage: 150 MG/M2;QD;PO; 150 MG/M2;QD;PO; 150 MG/M2;QD;PO; 150 MG/M2;QD;PO
     Route: 048
     Dates: start: 20070205, end: 20070209
  7. TEMODAL [Suspect]
     Indication: DISEASE RECURRENCE
     Dosage: 150 MG/M2;QD;PO; 150 MG/M2;QD;PO; 150 MG/M2;QD;PO; 150 MG/M2;QD;PO
     Route: 048
     Dates: start: 20070320, end: 20070324
  8. TEMODAL [Suspect]
     Indication: GLIOBLASTOMA MULTIFORME
     Dosage: 150 MG/M2;QD;PO; 150 MG/M2;QD;PO; 150 MG/M2;QD;PO; 150 MG/M2;QD;PO
     Route: 048
     Dates: start: 20070320, end: 20070324
  9. KYTRIL [Concomitant]
  10. ALEVIATIN [Concomitant]
  11. RINDERON [Concomitant]
  12. TEGRETOL [Concomitant]
  13. GRAN [Concomitant]
  14. CEFAMEZIN [Concomitant]
  15. SULPERAZON [Concomitant]

REACTIONS (6)
  - ALANINE AMINOTRANSFERASE INCREASED [None]
  - CEREBRAL INFARCTION [None]
  - CONDITION AGGRAVATED [None]
  - DISEASE PROGRESSION [None]
  - NEOPLASM PROGRESSION [None]
  - PARALYSIS [None]
